FAERS Safety Report 25543821 (Version 1)
Quarter: 2025Q3

REPORT INFORMATION
  Report Type: Other
  Country: US (occurrence: US)
  Receive Date: 20250711
  Receipt Date: 20250711
  Transmission Date: 20251021
  Serious: Yes (Hospitalization, Other)
  Sender: ANI
  Company Number: US-ANIPHARMA-023450

PATIENT
  Age: 30 Year
  Sex: Male

DRUGS (56)
  1. HYDROCORTISONE [Suspect]
     Active Substance: HYDROCORTISONE
     Indication: Adrenal insufficiency
  2. UPADACITINIB [Concomitant]
     Active Substance: UPADACITINIB
     Indication: Polyglandular autoimmune syndrome type II
  3. MYCOPHENOLIC ACID [Concomitant]
     Active Substance: MYCOPHENOLIC ACID
     Indication: Autoimmune enteropathy
  4. BUDESONIDE [Concomitant]
     Active Substance: BUDESONIDE
     Indication: Autoimmune enteropathy
  5. immune-globulin [Concomitant]
     Indication: Autoimmune enteropathy
  6. MYCOPHENOLATE MOFETIL [Concomitant]
     Active Substance: MYCOPHENOLATE MOFETIL
     Indication: Polyglandular autoimmune syndrome type II
  7. AZATHIOPRINE [Concomitant]
     Active Substance: AZATHIOPRINE
     Indication: Polyglandular autoimmune syndrome type II
  8. HYDROXYCHLOROQUINE [Concomitant]
     Active Substance: HYDROXYCHLOROQUINE
     Indication: Polyglandular autoimmune syndrome type II
  9. METHYLPREDNISOLONE [Concomitant]
     Active Substance: METHYLPREDNISOLONE
     Indication: Adrenal insufficiency
  10. CYCLOSPORINE [Concomitant]
     Active Substance: CYCLOSPORINE
     Indication: Polyglandular autoimmune syndrome type II
  11. TACROLIMUS [Concomitant]
     Active Substance: TACROLIMUS
     Indication: Autoimmune enteropathy
  12. FLUCONAZOLE [Concomitant]
     Active Substance: FLUCONAZOLE
     Indication: Mucocutaneous candidiasis
  13. NYSTATIN [Concomitant]
     Active Substance: NYSTATIN
     Indication: Mucocutaneous candidiasis
  14. RIFAXIMIN [Concomitant]
     Active Substance: RIFAXIMIN
     Indication: Mucocutaneous candidiasis
  15. GENTAMICIN [Concomitant]
     Active Substance: GENTAMICIN
     Indication: Mucocutaneous candidiasis
     Route: 045
  16. SODIUM CHLORIDE [Concomitant]
     Active Substance: SODIUM CHLORIDE
     Indication: Mucocutaneous candidiasis
     Route: 045
  17. VANCOMYCIN [Concomitant]
     Active Substance: VANCOMYCIN
     Indication: Mucocutaneous candidiasis
  18. SULFAMETHOXAZOLE\TRIMETHOPRIM [Concomitant]
     Active Substance: SULFAMETHOXAZOLE\TRIMETHOPRIM
     Indication: Mucocutaneous candidiasis
  19. AMPHOTERICIN B [Concomitant]
     Active Substance: AMPHOTERICIN B
     Indication: Mucocutaneous candidiasis
  20. CALCIUM [Concomitant]
     Active Substance: CALCIUM
     Indication: Hypoparathyroidism
  21. VITAMIN D [Concomitant]
     Active Substance: VITAMIN D NOS
     Indication: Hypoparathyroidism
  22. FLUDROCORTISONE [Concomitant]
     Active Substance: FLUDROCORTISONE
     Indication: Adrenal insufficiency
  23. ESOMEPRAZOLE [Concomitant]
     Active Substance: ESOMEPRAZOLE
     Indication: Autoimmune enteropathy
  24. URSODIOL [Concomitant]
     Active Substance: URSODIOL
     Indication: Autoimmune enteropathy
  25. COLESEVELAM [Concomitant]
     Active Substance: COLESEVELAM
     Indication: Autoimmune enteropathy
  26. IRON [Concomitant]
     Active Substance: IRON
     Indication: Malnutrition
  27. IRON [Concomitant]
     Active Substance: IRON
     Indication: Iron deficiency anaemia
  28. SULFAMETHOXAZOLE\TRIMETHOPRIM [Concomitant]
     Active Substance: SULFAMETHOXAZOLE\TRIMETHOPRIM
     Indication: Oesophageal candidiasis
  29. COLESEVELAM [Concomitant]
     Active Substance: COLESEVELAM
     Indication: Gastritis
  30. URSODIOL [Concomitant]
     Active Substance: URSODIOL
     Indication: Gastritis
  31. AMPHOTERICIN B [Concomitant]
     Active Substance: AMPHOTERICIN B
     Indication: Oesophageal candidiasis
  32. ESOMEPRAZOLE [Concomitant]
     Active Substance: ESOMEPRAZOLE
     Indication: Gastritis
  33. VANCOMYCIN [Concomitant]
     Active Substance: VANCOMYCIN
     Indication: Oesophageal candidiasis
  34. VANCOMYCIN [Concomitant]
     Active Substance: VANCOMYCIN
     Indication: Autoimmune enteropathy
  35. VANCOMYCIN [Concomitant]
     Active Substance: VANCOMYCIN
     Indication: Gastritis
  36. SODIUM CHLORIDE [Concomitant]
     Active Substance: SODIUM CHLORIDE
     Indication: Oesophageal candidiasis
     Route: 045
  37. GENTAMICIN [Concomitant]
     Active Substance: GENTAMICIN
     Indication: Oesophageal candidiasis
     Route: 045
  38. UPADACITINIB [Concomitant]
     Active Substance: UPADACITINIB
     Indication: Polyglandular autoimmune syndrome type II
  39. MYCOPHENOLIC ACID [Concomitant]
     Active Substance: MYCOPHENOLIC ACID
     Indication: Polyglandular autoimmune syndrome type II
  40. MYCOPHENOLIC ACID [Concomitant]
     Active Substance: MYCOPHENOLIC ACID
     Indication: Autoimmune enteropathy
  41. MYCOPHENOLIC ACID [Concomitant]
     Active Substance: MYCOPHENOLIC ACID
     Indication: Polyglandular autoimmune syndrome type II
  42. METHYLPREDNISOLONE [Concomitant]
     Active Substance: METHYLPREDNISOLONE
     Indication: Polyglandular autoimmune syndrome type II
  43. immune-globulin [Concomitant]
     Indication: Polyglandular autoimmune syndrome type II
  44. BUDESONIDE [Concomitant]
     Active Substance: BUDESONIDE
     Indication: Polyglandular autoimmune syndrome type II
  45. RIFAXIMIN [Concomitant]
     Active Substance: RIFAXIMIN
     Indication: Oesophageal candidiasis
  46. RIFAXIMIN [Concomitant]
     Active Substance: RIFAXIMIN
     Indication: Autoimmune enteropathy
  47. RIFAXIMIN [Concomitant]
     Active Substance: RIFAXIMIN
     Indication: Gastritis
  48. NYSTATIN [Concomitant]
     Active Substance: NYSTATIN
     Indication: Oesophageal candidiasis
  49. FLUCONAZOLE [Concomitant]
     Active Substance: FLUCONAZOLE
     Indication: Oesophageal candidiasis
  50. TACROLIMUS [Concomitant]
     Active Substance: TACROLIMUS
     Indication: Autoimmune hepatitis
  51. TACROLIMUS [Concomitant]
     Active Substance: TACROLIMUS
     Indication: Polyglandular autoimmune syndrome type II
  52. TACROLIMUS [Concomitant]
     Active Substance: TACROLIMUS
     Indication: Autoimmune enteropathy
  53. TACROLIMUS [Concomitant]
     Active Substance: TACROLIMUS
     Indication: Autoimmune hepatitis
  54. TACROLIMUS [Concomitant]
     Active Substance: TACROLIMUS
     Indication: Polyglandular autoimmune syndrome type II
  55. CYCLOSPORINE [Concomitant]
     Active Substance: CYCLOSPORINE
     Indication: Sjogren^s syndrome
  56. MYCOPHENOLATE MOFETIL [Concomitant]
     Active Substance: MYCOPHENOLATE MOFETIL
     Indication: Polyglandular autoimmune syndrome type II

REACTIONS (1)
  - Cataract [Unknown]
